FAERS Safety Report 4594885-6 (Version None)
Quarter: 2005Q1

REPORT INFORMATION
  Report Type: 
  Country: None (occurrence: None)
  Receive Date: 20050223
  Receipt Date: 20050209
  Transmission Date: 20050727
  Serious: Yes (Death, Hospitalization)
  Sender: FDA-Public Use
  Company Number: FABR-11010

PATIENT
  Sex: Male

DRUGS (1)
  1. FABRAZYME [Suspect]
     Indication: FABRY'S DISEASE

REACTIONS (5)
  - DISEASE PROGRESSION [None]
  - DISEASE RECURRENCE [None]
  - FABRY'S DISEASE [None]
  - HAEMANGIOMA [None]
  - ISCHAEMIC STROKE [None]
